FAERS Safety Report 16413350 (Version 4)
Quarter: 2020Q4

REPORT INFORMATION
  Report Type: Spontaneous
  Country: US (occurrence: US)
  Receive Date: 20190611
  Receipt Date: 20201218
  Transmission Date: 20210113
  Serious: Yes (Hospitalization, Other)
  Sender: FDA-Public Use
  Company Number: US-ASTRAZENECA-2018SF65039

PATIENT
  Age: 20528 Day
  Sex: Male
  Weight: 127 kg

DRUGS (59)
  1. PRILOSEC OTC [Suspect]
     Active Substance: OMEPRAZOLE MAGNESIUM
     Indication: GASTROOESOPHAGEAL REFLUX DISEASE
     Route: 048
     Dates: start: 201001, end: 201812
  2. TRICOR [Concomitant]
     Active Substance: FENOFIBRATE
  3. VICODIN [Concomitant]
     Active Substance: ACETAMINOPHEN\HYDROCODONE BITARTRATE
  4. CITALOPRAM [Concomitant]
     Active Substance: CITALOPRAM HYDROBROMIDE
  5. KLONOPIN [Concomitant]
     Active Substance: CLONAZEPAM
  6. TARKA [Concomitant]
     Active Substance: TRANDOLAPRIL\VERAPAMIL HYDROCHLORIDE
  7. SODIUM CHLORIDE. [Concomitant]
     Active Substance: SODIUM CHLORIDE
  8. SUCCINYLCHOLINE [Concomitant]
     Active Substance: SUCCINYLCHOLINE
  9. PRINIVIL [Concomitant]
     Active Substance: LISINOPRIL
  10. ALBUTEROL. [Concomitant]
     Active Substance: ALBUTEROL
  11. AMARYL [Concomitant]
     Active Substance: GLIMEPIRIDE
  12. APRESOLINE HYDROCHLORIDE [Concomitant]
     Active Substance: HYDRALAZINE HYDROCHLORIDE
  13. IMDUR [Concomitant]
     Active Substance: ISOSORBIDE MONONITRATE
  14. LEVEMIR [Concomitant]
     Active Substance: INSULIN DETEMIR
  15. INSULIN LISPRO [Concomitant]
     Active Substance: INSULIN LISPRO
  16. POTASSIUM CHLORIDE. [Concomitant]
     Active Substance: POTASSIUM CHLORIDE
     Indication: MINERAL SUPPLEMENTATION
     Dates: start: 2013
  17. CALCIUM CARBONATE. [Concomitant]
     Active Substance: CALCIUM CARBONATE
     Dosage: OTC
     Dates: start: 2014
  18. MAGNESIUM HYDROXIDE. [Concomitant]
     Active Substance: MAGNESIUM HYDROXIDE
     Dosage: OTC
     Dates: start: 2014
  19. GLIPIZIDE. [Concomitant]
     Active Substance: GLIPIZIDE
  20. ARIPIPRAZOLE. [Concomitant]
     Active Substance: ARIPIPRAZOLE
  21. LOFIBRA [Concomitant]
     Active Substance: FENOFIBRATE
  22. DICLOFENAC SODIUM. [Concomitant]
     Active Substance: DICLOFENAC SODIUM
  23. PRILOSEC OTC [Suspect]
     Active Substance: OMEPRAZOLE MAGNESIUM
     Indication: GASTROOESOPHAGEAL REFLUX DISEASE
     Route: 048
     Dates: start: 20100101, end: 20181231
  24. PRILOSEC [Suspect]
     Active Substance: OMEPRAZOLE MAGNESIUM
     Route: 048
  25. PROTONIX [Suspect]
     Active Substance: PANTOPRAZOLE SODIUM
     Indication: GASTROOESOPHAGEAL REFLUX DISEASE
     Route: 065
     Dates: start: 20100819
  26. CATAPRES [Concomitant]
     Active Substance: CLONIDINE HYDROCHLORIDE
  27. NEURONTIN [Concomitant]
     Active Substance: GABAPENTIN
  28. AZITHROMYCIN ANHYDROUS. [Concomitant]
     Active Substance: AZITHROMYCIN ANHYDROUS
     Indication: BLOOD CHOLESTEROL
     Dates: start: 2013, end: 2018
  29. LIDODERM [Concomitant]
     Active Substance: LIDOCAINE
  30. ROCURONIUM BROMIDE. [Concomitant]
     Active Substance: ROCURONIUM BROMIDE
  31. ASPIRIN. [Concomitant]
     Active Substance: ASPIRIN
     Indication: ANALGESIC THERAPY
     Dates: start: 2016
  32. FUROSEMIDE. [Concomitant]
     Active Substance: FUROSEMIDE
     Indication: BLOOD PRESSURE ABNORMAL
     Dates: start: 2012
  33. ULTRAM [Concomitant]
     Active Substance: TRAMADOL HYDROCHLORIDE
  34. PROTONIX [Suspect]
     Active Substance: PANTOPRAZOLE SODIUM
     Indication: GASTROOESOPHAGEAL REFLUX DISEASE
     Route: 065
     Dates: start: 20100819, end: 20190205
  35. COREG [Concomitant]
     Active Substance: CARVEDILOL
  36. XOPENEX [Concomitant]
     Active Substance: LEVALBUTEROL HYDROCHLORIDE
  37. AMLODIPINE [Concomitant]
     Active Substance: AMLODIPINE BESYLATE
     Indication: ANALGESIC THERAPY
     Dates: start: 2013
  38. OOXYCODONE-ACETAMINOPHEN [Concomitant]
     Indication: ANALGESIC THERAPY
     Dates: start: 2011
  39. AZITHROMYCIN ANHYDROUS. [Concomitant]
     Active Substance: AZITHROMYCIN ANHYDROUS
     Indication: INFECTION
     Dates: start: 2013, end: 2018
  40. HYDROCHLOROTHIAZIDE. [Concomitant]
     Active Substance: HYDROCHLOROTHIAZIDE
  41. CYCLOBENZAPRINE. [Concomitant]
     Active Substance: CYCLOBENZAPRINE
  42. OXYGEN. [Concomitant]
     Active Substance: OXYGEN
  43. ACIPHEX [Suspect]
     Active Substance: RABEPRAZOLE SODIUM
     Route: 065
  44. XANAX [Concomitant]
     Active Substance: ALPRAZOLAM
  45. LOTREL [Concomitant]
     Active Substance: AMLODIPINE BESYLATE\BENAZEPRIL HYDROCHLORIDE
  46. CELEXA [Concomitant]
     Active Substance: CITALOPRAM HYDROBROMIDE
  47. FLEXERIL [Concomitant]
     Active Substance: CYCLOBENZAPRINE HYDROCHLORIDE
  48. LANTUS [Concomitant]
     Active Substance: INSULIN GLARGINE
  49. NITROGLYCERIN. [Concomitant]
     Active Substance: NITROGLYCERIN
  50. PROPOFOL. [Concomitant]
     Active Substance: PROPOFOL
  51. PRILOSEC [Suspect]
     Active Substance: OMEPRAZOLE MAGNESIUM
     Dosage: GENERIC
     Route: 065
  52. PENNSAID [Concomitant]
     Active Substance: DICLOFENAC SODIUM
  53. PLAQUENIL [Concomitant]
     Active Substance: HYDROXYCHLOROQUINE SULFATE
  54. LEVOFLOXACIN. [Concomitant]
     Active Substance: LEVOFLOXACIN
     Indication: INFECTION
     Dates: start: 2012
  55. VITAMIN D3 [Concomitant]
     Active Substance: CHOLECALCIFEROL
     Indication: VITAMIN SUPPLEMENTATION
     Dates: start: 2018
  56. FAMOTIDINE. [Concomitant]
     Active Substance: FAMOTIDINE
     Dosage: OTC
     Dates: start: 2014
  57. ATORVASTATIN [Concomitant]
     Active Substance: ATORVASTATIN
     Indication: PAIN
     Dates: start: 2013
  58. METFORMIN [Concomitant]
     Active Substance: METFORMIN HYDROCHLORIDE
  59. ETODOLAC. [Concomitant]
     Active Substance: ETODOLAC

REACTIONS (9)
  - Chronic kidney disease [Not Recovered/Not Resolved]
  - Gastrooesophageal reflux disease [Not Recovered/Not Resolved]
  - Dyspepsia [Unknown]
  - Tubulointerstitial nephritis [Unknown]
  - End stage renal disease [Unknown]
  - Renal injury [Unknown]
  - Renal failure [Unknown]
  - Nephrogenic anaemia [Unknown]
  - Acute kidney injury [Not Recovered/Not Resolved]

NARRATIVE: CASE EVENT DATE: 20180301
